FAERS Safety Report 8966935 (Version 1)
Quarter: 2012Q4

REPORT INFORMATION
  Report Type: 
  Country: MX (occurrence: MX)
  Receive Date: 20121214
  Receipt Date: 20121214
  Transmission Date: 20130627
  Serious: Yes (Other)
  Sender: FDA-Public Use
  Company Number: MX-BAXTER-2012BAX026671

PATIENT
  Age: 40 Year
  Sex: Female
  Weight: 65 kg

DRUGS (5)
  1. SUPRANE [Suspect]
     Indication: ANESTHESIA
     Route: 055
  2. MIDAZOLAM [Concomitant]
     Indication: ANESTHESIA
     Route: 042
  3. VECURONIO [Concomitant]
     Indication: ANESTHESIA
     Route: 042
  4. FENTANYL [Concomitant]
     Indication: ANESTHESIA
     Dosage: 200 MCG
     Route: 042
  5. PROPOFOL [Concomitant]
     Indication: ANESTHESIA
     Route: 042

REACTIONS (4)
  - Rash erythematous [Recovered/Resolved]
  - Body temperature increased [Recovered/Resolved]
  - Heart rate increased [Recovered/Resolved]
  - Blood pressure increased [Recovered/Resolved]
